FAERS Safety Report 12129785 (Version 1)
Quarter: 2016Q1

REPORT INFORMATION
  Report Type: Spontaneous
  Country: FR (occurrence: None)
  Receive Date: 20160226
  Receipt Date: 20160226
  Transmission Date: 20160526
  Serious: Yes (Hospitalization)
  Sender: FDA-Public Use
  Company Number: RAP-001061-2015

PATIENT
  Age: 46 Year
  Sex: Female

DRUGS (5)
  1. SOLIAN (AMISULPRIDE) [Concomitant]
  2. LOXAPAC (LOXAPINE) [Concomitant]
     Active Substance: LOXAPINE SUCCINATE
  3. CYST-HD (CODE NOT BROKEN) DELAYED-RELEASED CAPSULE [Suspect]
     Active Substance: CYSTEAMINE BITARTRATE
     Indication: HUNTINGTON^S DISEASE
     Route: 048
     Dates: start: 20110125, end: 20120702
  4. LAMICTAL [Concomitant]
     Active Substance: LAMOTRIGINE
  5. CYSTEAMINE (CYSTEAMINE BITARTRATE) DELAYED-RELEASED CAPSULE [Suspect]
     Active Substance: CYSTEAMINE BITARTRATE
     Indication: HUNTINGTON^S DISEASE
     Route: 048
     Dates: start: 20120702

REACTIONS (1)
  - Hallucination, auditory [None]

NARRATIVE: CASE EVENT DATE: 20150422
